FAERS Safety Report 23068468 (Version 1)
Quarter: 2023Q4

REPORT INFORMATION
  Report Type: Report from Study
  Country: KR (occurrence: KR)
  Receive Date: 20231016
  Receipt Date: 20231016
  Transmission Date: 20240110
  Serious: Yes (Hospitalization, Other)
  Sender: FDA-Public Use
  Company Number: KR-MYLANLABS-2023M1107329

PATIENT
  Sex: Male
  Weight: 74 kg

DRUGS (20)
  1. PREGABALIN [Suspect]
     Active Substance: PREGABALIN
     Indication: Diabetic neuropathy
     Dosage: 1 DOSAGE FORM
     Route: 048
     Dates: start: 20211005, end: 20220104
  2. ROSUVASTATIN CALCIUM [Concomitant]
     Active Substance: ROSUVASTATIN CALCIUM
     Dosage: START DATE: 20-MAR-2017
     Route: 048
     Dates: start: 20170320
  3. ROSUVASTATIN CALCIUM [Concomitant]
     Active Substance: ROSUVASTATIN CALCIUM
     Dosage: UNK
     Route: 048
     Dates: start: 20211024, end: 20211212
  4. ROSUVASTATIN CALCIUM [Concomitant]
     Active Substance: ROSUVASTATIN CALCIUM
     Dosage: UNK
     Route: 048
     Dates: start: 20211213
  5. ASPIRIN [Concomitant]
     Active Substance: ASPIRIN
     Dosage: START DATE: 20-MAR-2017
     Route: 048
     Dates: start: 20170320
  6. FENOFIBRATE [Concomitant]
     Active Substance: FENOFIBRATE
     Dosage: START DATE: 26-MAY-2017
     Route: 048
  7. SILODOSIN [Concomitant]
     Active Substance: SILODOSIN
     Dosage: START DATE: 03-AUG-2020
     Route: 048
  8. VALSARTAN [Concomitant]
     Active Substance: VALSARTAN
     Dosage: START DATE: 21-JUN-2021
     Route: 048
  9. AMLODIPINE BESYLATE [Concomitant]
     Active Substance: AMLODIPINE BESYLATE
     Dosage: START DATE: 21-MAR-2017
     Route: 048
  10. URSODIOL [Concomitant]
     Active Substance: URSODIOL
     Dosage: START DATE: 20-MAR-2017
     Route: 048
  11. ESOMEPRAZOLE MAGNESIUM [Concomitant]
     Active Substance: ESOMEPRAZOLE\ESOMEPRAZOLE MAGNESIUM\ESOMEPRAZOLE MAGNESIUM DIHYDRATE
     Dosage: START DATE: 11-APR-2017
     Route: 058
     Dates: start: 20170411
  12. PREGABALIN [Concomitant]
     Active Substance: PREGABALIN
     Dosage: UNK (START 22-OCT-2021)
     Route: 048
     Dates: end: 20211212
  13. CLOPIDOGREL BISULFATE [Concomitant]
     Active Substance: CLOPIDOGREL BISULFATE
     Dosage: UNK (START 22-OCT-2021)
     Route: 048
  14. LIPITOR [Concomitant]
     Active Substance: ATORVASTATIN CALCIUM
     Dosage: UNK (START 22-OCT-2021)
     Route: 048
     Dates: end: 20211023
  15. ACETAMINOPHEN [Concomitant]
     Active Substance: ACETAMINOPHEN
     Dosage: UNK (START 25-OCT-2021)
     Route: 048
     Dates: end: 20211110
  16. ACETAMINOPHEN [Concomitant]
     Active Substance: ACETAMINOPHEN
     Dosage: UNK (START 28-OCT-2021)
     Route: 048
  17. PROPACETAMOL HYDROCHLORIDE [Concomitant]
     Active Substance: PROPACETAMOL HYDROCHLORIDE
     Dosage: UNK (START 26-OCT-2021)
     Route: 042
     Dates: end: 20211027
  18. AMITRIPTYLINE HYDROCHLORIDE [Concomitant]
     Active Substance: AMITRIPTYLINE HYDROCHLORIDE
     Dosage: UNK (START 27-OCT-2021)
     Route: 048
  19. IBUPROFEN [Concomitant]
     Active Substance: IBUPROFEN
     Dosage: UNK (START 28-OCT-2021)
     Route: 048
  20. GABAPENTIN [Concomitant]
     Active Substance: GABAPENTIN
     Dosage: UNK (START 28-OCT-2021)
     Route: 048

REACTIONS (1)
  - Thalamic infarction [Recovering/Resolving]

NARRATIVE: CASE EVENT DATE: 20211021
